FAERS Safety Report 8975614 (Version 1)
Quarter: 2012Q4

REPORT INFORMATION
  Report Type: 
  Country: US (occurrence: US)
  Receive Date: 20121219
  Receipt Date: 20121219
  Transmission Date: 20130627
  Serious: No
  Sender: FDA-Public Use
  Company Number: US-PFIZER INC-2012320322

PATIENT
  Age: 75 Year
  Sex: Male
  Weight: 53.52 kg

DRUGS (4)
  1. VIAGRA [Suspect]
     Indication: ERECTILE DYSFUNCTION
     Dosage: 100 mg, as needed
     Route: 048
     Dates: start: 2010
  2. LIPITOR [Concomitant]
     Indication: HIGH CHOLESTEROL
     Dosage: UNK
  3. PRANDIN [Concomitant]
     Indication: DIABETES
     Dosage: UNK
  4. AVODART [Concomitant]
     Indication: ENLARGED PROSTATE
     Dosage: UNK

REACTIONS (1)
  - Drug ineffective [Unknown]
